FAERS Safety Report 13114130 (Version 1)
Quarter: 2017Q1

REPORT INFORMATION
  Report Type: Spontaneous
  Country: US (occurrence: US)
  Receive Date: 20170113
  Receipt Date: 20170113
  Transmission Date: 20170428
  Serious: No
  Sender: FDA-Public Use
  Company Number: US-PFIZER INC-2017012219

PATIENT
  Age: 79 Year
  Sex: Male

DRUGS (1)
  1. SUTENT [Suspect]
     Active Substance: SUNITINIB MALATE
     Dosage: 37.5 MG, CYCLIC [1 CAPSULE ONCE A DAY FOR 4 WEEKS ON AND 2 WEEKS OFF]
     Route: 048
     Dates: start: 20170106

REACTIONS (1)
  - Yellow skin [Unknown]
